FAERS Safety Report 8304754-3 (Version None)
Quarter: 2012Q2

REPORT INFORMATION
  Report Type: 
  Country: None (occurrence: None)
  Receive Date: 20120423
  Receipt Date: 20120412
  Transmission Date: 20120825
  Serious: Yes (Other)
  Sender: FDA-Public Use
  Company Number: GB-ASTRAZENECA-2012SE24256

PATIENT
  Age: 18500 Day
  Sex: Male

DRUGS (5)
  1. FUSIDIC ACID [Concomitant]
     Indication: THYROID CANCER
     Dosage: AS REQUIRED
     Route: 003
     Dates: start: 20111010
  2. VANDETANIB [Suspect]
     Indication: THYROID CANCER
     Route: 048
     Dates: start: 20110907, end: 20120412
  3. LOPERAMIDE [Concomitant]
     Indication: THYROID CANCER
     Dosage: AS REQUIRED
     Route: 048
     Dates: start: 20100605, end: 20110903
  4. LEVOTHYROXINE SODIUM [Concomitant]
     Indication: THYROID CANCER
     Route: 048
  5. LOPERAMIDE [Concomitant]
     Dosage: AS REQUIRED
     Route: 048
     Dates: start: 20111216

REACTIONS (1)
  - HAEMATOCRIT INCREASED [None]
